FAERS Safety Report 10205711 (Version 3)
Quarter: 2014Q2

REPORT INFORMATION
  Report Type: Report from Study
  Country: ES (occurrence: ES)
  Receive Date: 20140530
  Receipt Date: 20140630
  Transmission Date: 20141212
  Serious: Yes (Hospitalization)
  Sender: FDA-Public Use
  Company Number: ES-NOVOPROD-410662

PATIENT
  Age: 14 Year
  Sex: Female
  Weight: 64 kg

DRUGS (3)
  1. INSULIN DETEMIR PENFILL [Suspect]
     Indication: TYPE 1 DIABETES MELLITUS
     Dosage: 62.5 U, QD
     Route: 058
     Dates: start: 20140124
  2. NOVORAPID PENFILL 3.0 ML [Suspect]
     Indication: TYPE 1 DIABETES MELLITUS
     Dosage: 46 U, QD
     Route: 058
     Dates: start: 20140124
  3. EBASTINE [Concomitant]
     Indication: RHINITIS ALLERGIC
     Dosage: 20 MG, QD
     Route: 048
     Dates: start: 20140507

REACTIONS (1)
  - Loss of consciousness [Recovered/Resolved]
